FAERS Safety Report 17514333 (Version 1)
Quarter: 2020Q1

REPORT INFORMATION
  Report Type: Spontaneous
  Country: US (occurrence: US)
  Receive Date: 20200226
  Receipt Date: 20200226
  Transmission Date: 20200409
  Serious: Yes (Hospitalization)
  Sender: FDA-Public Use
  Company Number: None

PATIENT
  Age: 76 Year
  Sex: Male

DRUGS (1)
  1. ASPIRIN (ASPIRIN 81MG TAB, EC) [Suspect]
     Active Substance: ASPIRIN
     Indication: DEEP VEIN THROMBOSIS
     Dosage: OTHER
     Dates: start: 20180724, end: 20200220

REACTIONS (7)
  - Gastric disorder [None]
  - Gastric haemorrhage [None]
  - Duodenal ulcer [None]
  - Portal hypertension [None]
  - Melaena [None]
  - Gastritis erosive [None]
  - Epistaxis [None]

NARRATIVE: CASE EVENT DATE: 20200211
